FAERS Safety Report 18452974 (Version 1)
Quarter: 2020Q4

REPORT INFORMATION
  Report Type: Spontaneous
  Country: BR (occurrence: BR)
  Receive Date: 20201102
  Receipt Date: 20201102
  Transmission Date: 20210114
  Serious: Yes (Other)
  Sender: FDA-Public Use
  Company Number: BR-JNJFOC-20201041565

PATIENT
  Age: 72 Year
  Sex: Female

DRUGS (1)
  1. RIVAROXABAN [Suspect]
     Active Substance: RIVAROXABAN
     Indication: ANGIOPLASTY
     Dosage: 2.5 MG, QID
     Route: 048
     Dates: end: 20201021

REACTIONS (3)
  - Skin discolouration [Unknown]
  - Thrombosis [Unknown]
  - Product prescribing issue [Unknown]
